FAERS Safety Report 10785754 (Version 1)
Quarter: 2015Q1

REPORT INFORMATION
  Report Type: Spontaneous
  Country: US (occurrence: US)
  Receive Date: 20150211
  Receipt Date: 20150211
  Transmission Date: 20150721
  Serious: Yes (Hospitalization)
  Sender: FDA-Public Use
  Company Number: US-MYLANLABS-2015M1003589

PATIENT

DRUGS (4)
  1. FLUPHENAZINE [Concomitant]
     Active Substance: FLUPHENAZINE
     Route: 065
  2. VALPROATE SEMISODIUM [Suspect]
     Active Substance: DIVALPROEX SODIUM
     Dosage: APPROXIMATELY 90 X 500 MG EXTENDED RELEASE VALPROATE SEMISODIUM TABLETS
  3. CLONAZEPAM. [Concomitant]
     Active Substance: CLONAZEPAM
     Route: 065
  4. BENZATROPINE [Suspect]
     Active Substance: BENZTROPINE
     Dosage: 15 X 2MG TABLETS

REACTIONS (2)
  - Intentional overdose [Recovered/Resolved]
  - Nephrogenic diabetes insipidus [Recovered/Resolved]
